FAERS Safety Report 22595616 (Version 1)
Quarter: 2023Q2

REPORT INFORMATION
  Report Type: Spontaneous
  Country: US (occurrence: US)
  Receive Date: 20230613
  Receipt Date: 20230613
  Transmission Date: 20230722
  Serious: No
  Sender: FDA-Public Use
  Company Number: US-RIGEL PHARMACEUTICALS, INC.-2022FOS000592

PATIENT
  Sex: Male
  Weight: 89.977 kg

DRUGS (2)
  1. TAVALISSE [Suspect]
     Active Substance: FOSTAMATINIB
     Indication: Immune thrombocytopenia
     Dosage: 100 MG, EVERY OTHER DAY
  2. TAVALISSE [Suspect]
     Active Substance: FOSTAMATINIB
     Dosage: 150 MG, BID
     Route: 048
     Dates: start: 20220528

REACTIONS (4)
  - Bladder cancer [Unknown]
  - Unevaluable event [Unknown]
  - Product prescribing issue [Unknown]
  - Liver injury [Unknown]

NARRATIVE: CASE EVENT DATE: 20220101
